FAERS Safety Report 16979284 (Version 1)
Quarter: 2019Q4

REPORT INFORMATION
  Report Type: Spontaneous
  Country: US (occurrence: US)
  Receive Date: 20191031
  Receipt Date: 20191031
  Transmission Date: 20200122
  Serious: Yes (Other)
  Sender: FDA-Public Use
  Company Number: US-SA-2019SA298185

PATIENT
  Sex: Female

DRUGS (1)
  1. LOVENOX [Suspect]
     Active Substance: ENOXAPARIN SODIUM
     Dosage: 135 MG, BID
     Route: 065

REACTIONS (4)
  - Pericardial effusion [Unknown]
  - Cerebrovascular accident [Unknown]
  - Adenocarcinoma [Unknown]
  - Thrombosis [Unknown]
